FAERS Safety Report 17083196 (Version 1)
Quarter: 2019Q4

REPORT INFORMATION
  Report Type: Spontaneous
  Country: US (occurrence: US)
  Receive Date: 20191127
  Receipt Date: 20191127
  Transmission Date: 20200122
  Serious: No
  Sender: FDA-Public Use
  Company Number: US-PFIZER INC-2019508268

PATIENT
  Age: 75 Year
  Sex: Female
  Weight: 95 kg

DRUGS (1)
  1. METHOTREXATE SODIUM. [Suspect]
     Active Substance: METHOTREXATE SODIUM
     Indication: SWELLING
     Dosage: 1 MG, 1X/DAY
     Dates: end: 201911

REACTIONS (1)
  - Drug ineffective [Unknown]
